FAERS Safety Report 8969584 (Version 1)
Quarter: 2012Q4

REPORT INFORMATION
  Report Type: 
  Country: US (occurrence: US)
  Receive Date: 20121218
  Receipt Date: 20121218
  Transmission Date: 20130627
  Serious: No
  Sender: FDA-Public Use
  Company Number: US-BRISTOL-MYERS SQUIBB COMPANY-16606790

PATIENT
  Age: 16 Year
  Sex: Male
  Weight: 81.63 kg

DRUGS (1)
  1. ABILIFY [Suspect]
     Indication: BIPOLAR DISORDER
     Dosage: Titrated to 5mg
     Dates: start: 20120430

REACTIONS (2)
  - Akathisia [Unknown]
  - Vision blurred [Unknown]
